FAERS Safety Report 9582388 (Version 1)
Quarter: 2013Q4

REPORT INFORMATION
  Report Type: Spontaneous
  Country: US (occurrence: US)
  Receive Date: 20131002
  Receipt Date: 20131002
  Transmission Date: 20140711
  Serious: No
  Sender: FDA-Public Use
  Company Number: US-AMGEN-USASP2013040125

PATIENT
  Age: 36 Year
  Sex: Female
  Weight: 136.5 kg

DRUGS (4)
  1. ENBREL [Suspect]
     Indication: PRODUCT USED FOR UNKNOWN INDICATION
     Dosage: 50 MG, QWK
     Route: 058
  2. MELOXICAM [Concomitant]
     Dosage: 7.5 MG, UNK
  3. FLEXERIL                           /00428402/ [Concomitant]
     Dosage: 5 MG, UNK
  4. CENTRUM                            /07499601/ [Concomitant]
     Dosage: UNK

REACTIONS (1)
  - Injection site mass [Unknown]
